FAERS Safety Report 10157719 (Version 2)
Quarter: 2014Q2

REPORT INFORMATION
  Report Type: Spontaneous
  Country: US (occurrence: US)
  Receive Date: 20140507
  Receipt Date: 20140603
  Transmission Date: 20141212
  Serious: No
  Sender: FDA-Public Use
  Company Number: US-009507513-1404USA012652

PATIENT
  Age: 90 Year
  Sex: Male

DRUGS (3)
  1. MIRALAX [Suspect]
     Indication: PRODUCT USED FOR UNKNOWN INDICATION
     Dosage: 17 G, UNKNOWN
     Route: 048
     Dates: start: 201404
  2. MIRALAX [Suspect]
     Dosage: 8.5 G, UNKNOWN
     Route: 048
     Dates: start: 201404
  3. MIRALAX [Suspect]
     Dosage: 4.25 G, UNKNOWN
     Route: 048
     Dates: start: 20140418

REACTIONS (5)
  - Pain [Recovered/Resolved]
  - Discomfort [Recovered/Resolved]
  - Underdose [Unknown]
  - Wrong technique in drug usage process [Unknown]
  - Drug effect decreased [Unknown]
